FAERS Safety Report 9729777 (Version 2)
Quarter: 2015Q3

REPORT INFORMATION
  Report Type: Spontaneous
  Country: US (occurrence: US)
  Receive Date: 20131204
  Receipt Date: 20150804
  Transmission Date: 20151125
  Serious: No
  Sender: FDA-Public Use
  Company Number: US-GILEAD-2009-0022427

PATIENT
  Age: 66 Year
  Sex: Male
  Weight: 89.81 kg

DRUGS (13)
  1. ALDACTONE [Concomitant]
     Active Substance: SPIRONOLACTONE
  2. GASTROFIBER [Concomitant]
  3. LETAIRIS [Suspect]
     Active Substance: AMBRISENTAN
     Indication: PULMONARY ARTERIAL HYPERTENSION
     Route: 048
     Dates: start: 20090313
  4. LEVOTHYROXINE. [Concomitant]
     Active Substance: LEVOTHYROXINE
  5. KANGEN [Concomitant]
  6. SP GREEN FOOD [Concomitant]
  7. ESSIAC [Concomitant]
  8. FLAX OIL [Concomitant]
  9. LASIX [Concomitant]
     Active Substance: FUROSEMIDE
  10. ENULOSE [Concomitant]
     Active Substance: LACTULOSE
  11. MARSHMALLOW ROOT [Concomitant]
  12. KLOR-CON [Concomitant]
     Active Substance: POTASSIUM CHLORIDE
  13. SP DIETARY [Concomitant]

REACTIONS (5)
  - Liver function test abnormal [Unknown]
  - Unevaluable event [Unknown]
  - Disturbance in attention [Unknown]
  - Pain in extremity [Unknown]
  - Peripheral swelling [Unknown]
